FAERS Safety Report 8183362-1 (Version None)
Quarter: 2012Q1

REPORT INFORMATION
  Report Type: 
  Country: None (occurrence: None)
  Receive Date: 20120201
  Receipt Date: 20110214
  Transmission Date: 20120608
  Serious: Yes (Hospitalization)
  Sender: FDA-Public Use
  Company Number: 261858USA

PATIENT
  Age: 73 Year
  Sex: Female

DRUGS (3)
  1. PROPOXYPHENE NAPSYLATE AND ACETAMINOPHEN [Suspect]
     Indication: PAIN
     Dates: start: 20090801, end: 20101101
  2. PROPOXYPHENE NAPSYLATE AND ACETAMINOPHEN [Suspect]
     Indication: HYPERTENSION
     Dates: start: 20090801, end: 20101101
  3. HYDRALAZINE HCL [Concomitant]

REACTIONS (3)
  - DIZZINESS [None]
  - PALPITATIONS [None]
  - BLOOD PRESSURE DIASTOLIC INCREASED [None]
